FAERS Safety Report 7238153-2 (Version None)
Quarter: 2011Q1

REPORT INFORMATION
  Report Type: 
  Country: None (occurrence: None)
  Receive Date: 20110121
  Receipt Date: 20101210
  Transmission Date: 20110831
  Serious: Yes (Death, Hospitalization, Other)
  Sender: FDA-Public Use
  Company Number: US-BAXTER-2010BH001616

PATIENT
  Age: 77 Year
  Sex: Male

DRUGS (79)
  1. HEPARIN SODIUM INJECTION [Suspect]
     Route: 040
     Dates: start: 20080109, end: 20080109
  2. HEPARIN SODIUM INJECTION [Suspect]
     Route: 042
     Dates: start: 20071220, end: 20071224
  3. HEPARIN SODIUM INJECTION [Suspect]
     Route: 042
     Dates: start: 20080115, end: 20080115
  4. HEPARIN SODIUM INJECTION [Suspect]
     Route: 042
     Dates: start: 20071220, end: 20071224
  5. HEPARIN SODIUM INJECTION [Suspect]
     Route: 042
     Dates: start: 20071220, end: 20071224
  6. HEPARIN SODIUM INJECTION [Suspect]
     Route: 042
     Dates: start: 20080212, end: 20080212
  7. HEPARIN SODIUM INJECTION [Suspect]
     Route: 042
     Dates: start: 20080212, end: 20080212
  8. CORDARONE [Concomitant]
     Indication: PRODUCT USED FOR UNKNOWN INDICATION
     Route: 065
  9. VITAMIN E [Concomitant]
     Indication: PRODUCT USED FOR UNKNOWN INDICATION
     Route: 065
  10. NEPHROCAPS [Concomitant]
     Indication: PRODUCT USED FOR UNKNOWN INDICATION
     Route: 065
  11. INSULIN [Concomitant]
     Indication: PRODUCT USED FOR UNKNOWN INDICATION
     Route: 065
  12. COLCHICINE [Concomitant]
     Indication: PRODUCT USED FOR UNKNOWN INDICATION
     Route: 065
  13. IMDUR [Concomitant]
     Indication: PRODUCT USED FOR UNKNOWN INDICATION
     Route: 065
  14. HEPARIN SODIUM INJECTION [Suspect]
     Indication: HAEMODIALYSIS
     Route: 040
     Dates: start: 20060819, end: 20071201
  15. HEPARIN SODIUM INJECTION [Suspect]
     Route: 065
     Dates: start: 20071201, end: 20080101
  16. HEPARIN SODIUM INJECTION [Suspect]
     Route: 042
     Dates: start: 20080115, end: 20080115
  17. HEPARIN SODIUM INJECTION [Suspect]
     Route: 040
     Dates: start: 20080115, end: 20080212
  18. HEPARIN SODIUM INJECTION [Suspect]
     Route: 042
     Dates: start: 20080115, end: 20080212
  19. HEPARIN SODIUM 1,000 UNITS AND SODIUM CHLORIDE 0.9% [Suspect]
     Indication: ANGIOPLASTY
     Route: 042
     Dates: start: 20071211, end: 20071211
  20. DARVOCET-N 100 [Concomitant]
     Indication: PRODUCT USED FOR UNKNOWN INDICATION
     Route: 065
  21. PROAMATINE [Concomitant]
     Indication: PRODUCT USED FOR UNKNOWN INDICATION
     Route: 065
  22. DIGOXIN [Concomitant]
     Indication: PRODUCT USED FOR UNKNOWN INDICATION
     Route: 065
  23. ATIVAN [Concomitant]
     Indication: PRODUCT USED FOR UNKNOWN INDICATION
     Route: 065
  24. HEPARIN SODIUM INJECTION [Suspect]
     Indication: THROMBOSIS PROPHYLAXIS
     Route: 040
     Dates: start: 20060819, end: 20071201
  25. HEPARIN SODIUM INJECTION [Suspect]
     Indication: INTRAVENOUS CATHETER MANAGEMENT
     Route: 040
     Dates: start: 20060819, end: 20071201
  26. HEPARIN SODIUM INJECTION [Suspect]
     Route: 042
     Dates: start: 20060819, end: 20071201
  27. HEPARIN SODIUM INJECTION [Suspect]
     Route: 058
     Dates: start: 20071212, end: 20071224
  28. HEPARIN SODIUM INJECTION [Suspect]
     Route: 040
     Dates: start: 20080109, end: 20080109
  29. HEPARIN SODIUM 5,000 UNITS IN DEXTROSE 5% [Suspect]
     Route: 042
     Dates: start: 20080109, end: 20080110
  30. NEURONTIN [Suspect]
     Route: 065
     Dates: start: 20080131, end: 20080212
  31. THYROID TAB [Concomitant]
     Indication: PRODUCT USED FOR UNKNOWN INDICATION
     Route: 065
  32. GRANULEX [Concomitant]
     Indication: PRODUCT USED FOR UNKNOWN INDICATION
     Route: 065
  33. HEPARIN SODIUM INJECTION [Suspect]
     Route: 042
     Dates: start: 20060819, end: 20071201
  34. HEPARIN SODIUM INJECTION [Suspect]
     Route: 058
     Dates: start: 20071212, end: 20071224
  35. HEPARIN SODIUM INJECTION [Suspect]
     Route: 065
     Dates: start: 20071201, end: 20080101
  36. HEPARIN SODIUM INJECTION [Suspect]
     Route: 042
     Dates: start: 20071220, end: 20071224
  37. HEPARIN SODIUM INJECTION [Suspect]
     Route: 042
     Dates: start: 20071220, end: 20071224
  38. HEPARIN SODIUM INJECTION [Suspect]
     Route: 042
     Dates: start: 20071220, end: 20071224
  39. HEPARIN SODIUM INJECTION [Suspect]
     Route: 040
     Dates: start: 20080212, end: 20080212
  40. HEPARIN SODIUM INJECTION [Suspect]
     Route: 042
     Dates: start: 20080212, end: 20080212
  41. LIPITOR [Concomitant]
     Indication: PRODUCT USED FOR UNKNOWN INDICATION
     Route: 065
  42. IMIDIN [Concomitant]
     Indication: PRODUCT USED FOR UNKNOWN INDICATION
     Route: 065
  43. NITROGLYCERIN [Concomitant]
     Indication: PRODUCT USED FOR UNKNOWN INDICATION
     Route: 065
  44. HEPARIN SODIUM INJECTION [Suspect]
     Indication: ANTICOAGULANT THERAPY
     Route: 040
     Dates: start: 20060819, end: 20071201
  45. HEPARIN SODIUM INJECTION [Suspect]
     Route: 042
     Dates: start: 20060819, end: 20071201
  46. HEPARIN SODIUM INJECTION [Suspect]
     Route: 065
     Dates: start: 20071201, end: 20080101
  47. HEPARIN SODIUM INJECTION [Suspect]
     Route: 065
     Dates: start: 20071201, end: 20080101
  48. HEPARIN SODIUM INJECTION [Suspect]
     Route: 042
     Dates: start: 20080115, end: 20080115
  49. HEPARIN SODIUM INJECTION [Suspect]
     Route: 042
     Dates: start: 20080212, end: 20080212
  50. PRILOSEC [Concomitant]
     Indication: PRODUCT USED FOR UNKNOWN INDICATION
     Route: 065
  51. PHOSLO [Concomitant]
     Indication: PRODUCT USED FOR UNKNOWN INDICATION
     Route: 065
  52. ULTRAM [Concomitant]
     Indication: PRODUCT USED FOR UNKNOWN INDICATION
     Route: 065
  53. RESTORIL [Concomitant]
     Indication: PRODUCT USED FOR UNKNOWN INDICATION
     Route: 065
  54. EPOGEN [Concomitant]
     Indication: PRODUCT USED FOR UNKNOWN INDICATION
     Route: 065
  55. HEPARIN SODIUM INJECTION [Suspect]
     Route: 058
     Dates: start: 20071212, end: 20071224
  56. HEPARIN SODIUM INJECTION [Suspect]
     Route: 042
     Dates: start: 20071220, end: 20071224
  57. HEPARIN SODIUM INJECTION [Suspect]
     Route: 042
     Dates: start: 20080115, end: 20080212
  58. HEPARIN SODIUM INJECTION [Suspect]
     Route: 040
     Dates: start: 20080212, end: 20080212
  59. HEPARIN SODIUM INJECTION [Suspect]
     Route: 040
     Dates: start: 20080212, end: 20080212
  60. HEPARIN SODIUM 5,000 UNITS IN DEXTROSE 5% [Suspect]
     Indication: ANTICOAGULANT THERAPY
     Route: 065
     Dates: start: 20071201, end: 20080101
  61. WARFARIN SODIUM [Suspect]
     Indication: ATRIAL FIBRILLATION
     Route: 048
     Dates: start: 20071201
  62. NEURONTIN [Suspect]
     Indication: PRODUCT USED FOR UNKNOWN INDICATION
     Route: 065
     Dates: end: 20080131
  63. HEPARIN SODIUM INJECTION [Suspect]
     Route: 040
     Dates: start: 20080109, end: 20080109
  64. HEPARIN SODIUM INJECTION [Suspect]
     Route: 040
     Dates: start: 20080115, end: 20080212
  65. HEPARIN SODIUM INJECTION [Suspect]
     Route: 040
     Dates: start: 20080115, end: 20080212
  66. HEPARIN SODIUM INJECTION [Suspect]
     Route: 040
     Dates: start: 20080115, end: 20080212
  67. HEPARIN SODIUM INJECTION [Suspect]
     Route: 042
     Dates: start: 20080115, end: 20080212
  68. HEPARIN SODIUM INJECTION [Suspect]
     Route: 042
     Dates: start: 20080115, end: 20080212
  69. WARFARIN SODIUM [Suspect]
     Route: 048
     Dates: start: 20071201
  70. ASA [Concomitant]
     Indication: PRODUCT USED FOR UNKNOWN INDICATION
     Route: 065
  71. HEPARIN SODIUM INJECTION [Suspect]
     Route: 042
     Dates: start: 20060819, end: 20071201
  72. HEPARIN SODIUM INJECTION [Suspect]
     Route: 058
     Dates: start: 20071212, end: 20071224
  73. HEPARIN SODIUM INJECTION [Suspect]
     Route: 040
     Dates: start: 20080109, end: 20080109
  74. HEPARIN SODIUM INJECTION [Suspect]
     Route: 042
     Dates: start: 20080115, end: 20080115
  75. HEPARIN SODIUM INJECTION [Suspect]
     Route: 042
     Dates: start: 20071220, end: 20071224
  76. HEPARIN SODIUM INJECTION [Suspect]
     Route: 040
     Dates: start: 20080212, end: 20080212
  77. COLACE [Concomitant]
     Indication: PRODUCT USED FOR UNKNOWN INDICATION
     Route: 065
  78. ARICEPT [Concomitant]
     Indication: PRODUCT USED FOR UNKNOWN INDICATION
     Route: 065
  79. HYDRALAZINE [Concomitant]
     Indication: PRODUCT USED FOR UNKNOWN INDICATION
     Route: 065

REACTIONS (24)
  - TYPE 2 DIABETES MELLITUS [None]
  - METABOLIC ENCEPHALOPATHY [None]
  - MENTAL STATUS CHANGES [None]
  - DECREASED APPETITE [None]
  - DECUBITUS ULCER [None]
  - ESCHERICHIA TEST POSITIVE [None]
  - FLUID OVERLOAD [None]
  - CONFUSIONAL STATE [None]
  - HAEMOGLOBIN DECREASED [None]
  - ARTERIOVENOUS FISTULA THROMBOSIS [None]
  - NAUSEA [None]
  - RASH [None]
  - ARTERIOSCLEROSIS CORONARY ARTERY [None]
  - HYPOTENSION [None]
  - HIP FRACTURE [None]
  - WEIGHT DECREASED [None]
  - HAEMATOCRIT DECREASED [None]
  - DIZZINESS [None]
  - CARDIAC FLUTTER [None]
  - ENTEROCOCCUS TEST POSITIVE [None]
  - SEPSIS [None]
  - DYSPNOEA [None]
  - COAGULOPATHY [None]
  - FALL [None]
